FAERS Safety Report 7086781-X (Version None)
Quarter: 2010Q4

REPORT INFORMATION
  Report Type: 
  Country: None (occurrence: None)
  Receive Date: 20101105
  Receipt Date: 20101022
  Transmission Date: 20110411
  Serious: Yes (Hospitalization, Other)
  Sender: FDA-Public Use
  Company Number: DE-GENENTECH-301276

PATIENT
  Sex: Male
  Weight: 87.5 kg

DRUGS (7)
  1. RITUXIMAB [Suspect]
     Indication: CHRONIC LYMPHOCYTIC LEUKAEMIA
     Dosage: 798 MG, UNK
     Route: 042
     Dates: start: 20100315, end: 20100315
  2. RITUXIMAB [Suspect]
     Dosage: 1000 MG, UNK
     Route: 042
     Dates: start: 20100419, end: 20100419
  3. FLUDARABINE [Concomitant]
     Indication: PRODUCT USED FOR UNKNOWN INDICATION
     Dosage: 52 MG, UNK
     Dates: start: 20100316, end: 20100318
  4. FLUDARABINE [Concomitant]
     Dosage: 52 MG, UNK
     Dates: start: 20100419, end: 20100421
  5. CYCLOPHOSPHAMIDE [Concomitant]
     Indication: PRODUCT USED FOR UNKNOWN INDICATION
     Dosage: 532 MG, UNK
     Dates: start: 20100316, end: 20100318
  6. CYCLOPHOSPHAMIDE [Concomitant]
     Dosage: 532 MG, UNK
     Dates: start: 20100419, end: 20100421
  7. METFORMIN HCL [Concomitant]
     Indication: PRODUCT USED FOR UNKNOWN INDICATION
     Dosage: 500 MG, UNK

REACTIONS (3)
  - CIRCULATORY COLLAPSE [None]
  - ORTHOSTATIC HYPOTENSION [None]
  - SYNCOPE [None]
